FAERS Safety Report 5311450-3 (Version None)
Quarter: 2007Q2

REPORT INFORMATION
  Report Type: 
  Country: None (occurrence: None)
  Receive Date: 20070426
  Receipt Date: 20070426
  Transmission Date: 20071010
  Serious: Yes (Other)
  Sender: FDA-Public Use
  Company Number: None

PATIENT
  Age: 60 Year
  Sex: Male
  Weight: 85.7 kg

DRUGS (10)
  1. MORPHINE [Suspect]
  2. AMOXICILLIN [Concomitant]
  3. BUPROPION HCL [Concomitant]
  4. TRAZODONE HCL [Concomitant]
  5. FLUOXETINE HCL [Concomitant]
  6. OMEPRAZOLE [Concomitant]
  7. FENTANYL [Concomitant]
  8. ACETAMINOPHEN [Concomitant]
  9. CHLORHEXIDINE GLUCONATE [Concomitant]
  10. DOCUSATE NA [Concomitant]

REACTIONS (3)
  - DIZZINESS [None]
  - NAUSEA [None]
  - VOMITING [None]
